FAERS Safety Report 6525937-9 (Version None)
Quarter: 2010Q1

REPORT INFORMATION
  Report Type: 
  Country: None (occurrence: None)
  Receive Date: 20100104
  Receipt Date: 20091222
  Transmission Date: 20100710
  Serious: Yes (Other)
  Sender: FDA-Public Use
  Company Number: JP-PFIZER INC-2009264146

PATIENT
  Age: 84 Year
  Sex: Female
  Weight: 31.8 kg

DRUGS (6)
  1. ZOLOFT [Suspect]
     Dosage: 25 MG, 1X/DAY
     Route: 048
     Dates: start: 20081107
  2. ONE-ALPHA [Concomitant]
     Route: 048
  3. CARBIDOPA AND LEVODOPA [Concomitant]
     Route: 048
  4. MERISLON [Concomitant]
     Route: 048
  5. BERIZYM [Concomitant]
     Route: 048
  6. MEVALOTIN [Concomitant]
     Route: 048

REACTIONS (1)
  - HYPOKALAEMIA [None]
